FAERS Safety Report 24978004 (Version 3)
Quarter: 2025Q2

REPORT INFORMATION
  Report Type: Spontaneous
  Country: JP (occurrence: JP)
  Receive Date: 20250217
  Receipt Date: 20250416
  Transmission Date: 20250717
  Serious: Yes (Death, Other)
  Sender: MERCK SHARP AND DOHME
  Company Number: JP-009507513-2255511

PATIENT
  Age: 5 Decade
  Sex: Female

DRUGS (1)
  1. KEYTRUDA [Suspect]
     Active Substance: PEMBROLIZUMAB
     Indication: Cervix carcinoma stage III
     Dosage: 200 MG EVERY 3 WEEKS
     Route: 041
     Dates: end: 202501

REACTIONS (3)
  - Cardio-respiratory arrest [Fatal]
  - Anaemia [Unknown]
  - Haematemesis [Unknown]

NARRATIVE: CASE EVENT DATE: 20250101
